FAERS Safety Report 6586752-3 (Version None)
Quarter: 2010Q1

REPORT INFORMATION
  Report Type: 
  Country: None (occurrence: None)
  Receive Date: 20100217
  Receipt Date: 20090708
  Transmission Date: 20100710
  Serious: No
  Sender: FDA-Public Use
  Company Number: US-ALLERGAN-0909634US

PATIENT
  Age: 47 Year
  Sex: Female

DRUGS (13)
  1. BOTOX [Suspect]
     Indication: TORTICOLLIS
     Dosage: 200 UNITS, SINGLE
     Route: 030
     Dates: start: 20090701, end: 20090701
  2. ZESTRIL [Concomitant]
  3. CLONIDINE [Concomitant]
  4. LASIX [Concomitant]
  5. SYNTHROID [Concomitant]
  6. BENTYL [Concomitant]
  7. ATARAX [Concomitant]
  8. PHENERGAN HCL [Concomitant]
  9. OXYCODONE HCL [Concomitant]
  10. NEURONTIN [Concomitant]
  11. FLEXERIL [Concomitant]
  12. GLUCOPHAGE [Concomitant]
  13. COLACE [Concomitant]

REACTIONS (1)
  - MUSCULAR WEAKNESS [None]
